FAERS Safety Report 20171622 (Version 1)
Quarter: 2021Q4

REPORT INFORMATION
  Report Type: Report from Study
  Country: US (occurrence: US)
  Receive Date: 20211210
  Receipt Date: 20211210
  Transmission Date: 20220303
  Serious: Yes (Hospitalization)
  Sender: FDA-Public Use
  Company Number: US-BAUSCH-BL-2021-040622

PATIENT
  Age: 59 Year
  Sex: Male
  Weight: 94.8 kg

DRUGS (15)
  1. XIFAXAN [Suspect]
     Active Substance: RIFAXIMIN
     Indication: Hepatic encephalopathy
     Route: 048
  2. BENADRYL [Concomitant]
     Active Substance: DIPHENHYDRAMINE HYDROCHLORIDE
     Indication: Product used for unknown indication
     Dosage: 1 HR BEFORE PROCEDURE
     Route: 048
     Dates: start: 20210715
  3. VITAMIN D2 [Concomitant]
     Active Substance: ERGOCALCIFEROL
     Indication: Product used for unknown indication
     Route: 048
     Dates: start: 20210615
  4. FERROUS SULFATE [Concomitant]
     Active Substance: FERROUS SULFATE
     Indication: Product used for unknown indication
     Route: 048
     Dates: start: 20210824
  5. FERROUS SULFATE [Concomitant]
     Active Substance: FERROUS SULFATE
     Route: 048
  6. LASIX [Concomitant]
     Active Substance: FUROSEMIDE
     Indication: Ascites
     Route: 048
     Dates: start: 20210831
  7. LANTUS [Concomitant]
     Active Substance: INSULIN GLARGINE
     Indication: Product used for unknown indication
     Dosage: 100 UNIT/ML (3 ML) INJECT 20 UNITS EVERY EVENING
     Route: 058
     Dates: start: 20190221
  8. LANTUS [Concomitant]
     Active Substance: INSULIN GLARGINE
     Dosage: 100 UNIT/ML (3 ML) INJECT 10 UNITS ONCE A DAY
     Route: 058
     Dates: start: 20190221
  9. CLARITIN [Concomitant]
     Active Substance: LORATADINE
     Indication: Hypersensitivity
     Dosage: DAILY AS NEEDED (1-2 TIMES A WEEK)
     Route: 048
     Dates: start: 20170222
  10. CORGARD [Concomitant]
     Active Substance: NADOLOL
     Indication: Varices oesophageal
     Dosage: DAILY
     Route: 048
     Dates: start: 20180530
  11. CORGARD [Concomitant]
     Active Substance: NADOLOL
     Dosage: DAILY
     Route: 048
  12. PROTONIX [Concomitant]
     Active Substance: PANTOPRAZOLE SODIUM
     Indication: Product used for unknown indication
     Dosage: FOR 90 DAYS
     Route: 048
     Dates: start: 20180413
  13. DELTASONE [Concomitant]
     Active Substance: PREDNISONE
     Indication: Product used for unknown indication
     Dosage: 1 TABLET 13 HRS, 7 HRS, AND 1 HR BEFORE PROCEDURE
     Route: 048
     Dates: start: 20150715
  14. ALDACTONE [Concomitant]
     Active Substance: SPIRONOLACTONE
     Indication: Ascites
     Route: 048
     Dates: start: 20210831
  15. LACTULOSE [Concomitant]
     Active Substance: LACTULOSE
     Indication: Hepatic encephalopathy
     Dosage: FOR 21 DAYS
     Route: 048

REACTIONS (4)
  - Hospitalisation [Unknown]
  - Umbilical hernia [Unknown]
  - Presyncope [Unknown]
  - Dizziness [Unknown]
